FAERS Safety Report 6438215-3 (Version None)
Quarter: 2009Q4

REPORT INFORMATION
  Report Type: 
  Country: None (occurrence: None)
  Receive Date: 20091112
  Receipt Date: 20091102
  Transmission Date: 20100525
  Serious: Yes (Other)
  Sender: FDA-Public Use
  Company Number: KR-PFIZER INC-2009292052

PATIENT
  Sex: Female

DRUGS (1)
  1. NORVASC [Suspect]
     Indication: HYPERTENSION
     Dosage: 5 MG, UNK

REACTIONS (5)
  - BLOOD UREA INCREASED [None]
  - CREATININE URINE INCREASED [None]
  - HAEMATURIA [None]
  - PROTEINURIA [None]
  - RENAL CYST [None]
